FAERS Safety Report 24591966 (Version 1)
Quarter: 2024Q4

REPORT INFORMATION
  Report Type: Spontaneous
  Country: US (occurrence: US)
  Receive Date: 20241108
  Receipt Date: 20241108
  Transmission Date: 20250114
  Serious: Yes (Other)
  Sender: AMGEN
  Company Number: US-AMGEN-USASP2024217183

PATIENT
  Sex: Female

DRUGS (3)
  1. TEPEZZA [Suspect]
     Active Substance: TEPROTUMUMAB-TRBW
     Indication: Endocrine ophthalmopathy
     Dosage: UNK
     Route: 040
     Dates: start: 2023, end: 202307
  2. CALCIUM [Concomitant]
     Active Substance: CALCIUM
     Dosage: UNK
  3. VITAMIN D [Concomitant]
     Active Substance: VITAMIN D NOS
     Dosage: UNK

REACTIONS (8)
  - Endocrine ophthalmopathy [Unknown]
  - Ligament operation [Recovering/Resolving]
  - Osteoporosis [Recovering/Resolving]
  - Onychalgia [Recovered/Resolved]
  - Nail growth abnormal [Recovered/Resolved]
  - Alopecia [Recovered/Resolved]
  - Osteopenia [Recovering/Resolving]
  - Anti-thyroid antibody increased [Unknown]
